FAERS Safety Report 4339223-9 (Version None)
Quarter: 2004Q2

REPORT INFORMATION
  Report Type: 
  Country: None (occurrence: None)
  Receive Date: 20040414
  Receipt Date: 20040414
  Transmission Date: 20050107
  Serious: Yes (Other)
  Sender: FDA-Public Use
  Company Number: None

PATIENT
  Age: 59 Year
  Sex: Male
  Weight: 177.1 kg

DRUGS (1)
  1. TRAMADOL HCL [Suspect]

REACTIONS (1)
  - PRURITUS [None]
